FAERS Safety Report 6649964-6 (Version None)
Quarter: 2010Q1

REPORT INFORMATION
  Report Type: 
  Country: None (occurrence: None)
  Receive Date: 20100324
  Receipt Date: 20100324
  Transmission Date: 20100710
  Serious: No
  Sender: FDA-Public Use
  Company Number: None

PATIENT
  Age: 57 Year
  Sex: Male
  Weight: 97.5234 kg

DRUGS (1)
  1. KADIAN [Suspect]
     Indication: PAIN
     Dosage: KADIAN  TWICE/DAY
     Dates: start: 20080901

REACTIONS (1)
  - WITHDRAWAL SYNDROME [None]
